FAERS Safety Report 8777173 (Version 1)
Quarter: 2012Q4

REPORT INFORMATION
  Report Type: 
  Country: US (occurrence: US)
  Receive Date: 20120911
  Receipt Date: 20120911
  Transmission Date: 20130627
  Serious: Yes (Other)
  Sender: FDA-Public Use
  Company Number: US-INCYTE CORPORATION-2012IN001692

PATIENT
  Sex: Male

DRUGS (12)
  1. JAKAFI [Suspect]
     Indication: MYELOFIBROSIS
     Dosage: 15 mg, bid
     Route: 048
     Dates: start: 2012
  2. PLAVIX [Concomitant]
  3. ANTIHISTAMINES [Concomitant]
  4. LEVOTHYROXINE [Concomitant]
  5. METOPROLOL [Concomitant]
  6. LIRAGLUTIDE [Concomitant]
  7. INSULIN [Concomitant]
  8. METFORMIN [Concomitant]
  9. DIOVAN [Concomitant]
  10. AMLODIPINE [Concomitant]
  11. NEXIUM [Concomitant]
  12. SINGULAIR [Concomitant]

REACTIONS (4)
  - Breast mass [Recovered/Resolved]
  - Nipple exudate bloody [Not Recovered/Not Resolved]
  - Anaemia [Not Recovered/Not Resolved]
  - Blood testosterone decreased [Not Recovered/Not Resolved]
